FAERS Safety Report 5269157-7 (Version None)
Quarter: 2007Q1

REPORT INFORMATION
  Report Type: 
  Country: None (occurrence: None)
  Receive Date: 20070319
  Receipt Date: 20070312
  Transmission Date: 20070707
  Serious: Yes (Other)
  Sender: FDA-Public Use
  Company Number: US-ROXANE LABORATORIES, INC-2007-BP-03495RO

PATIENT
  Age: 45 Year
  Sex: Female

DRUGS (1)
  1. LITHIUM CARBONATE [Suspect]
     Indication: BIPOLAR DISORDER

REACTIONS (5)
  - CONSTIPATION [None]
  - HYPERCALCAEMIA [None]
  - HYPERPARATHYROIDISM [None]
  - PARATHYROID TUMOUR BENIGN [None]
  - POLYDIPSIA [None]
